FAERS Safety Report 10355969 (Version 1)
Quarter: 2014Q3

REPORT INFORMATION
  Report Type: Spontaneous
  Country: US (occurrence: US)
  Receive Date: 20140801
  Receipt Date: 20140801
  Transmission Date: 20150326
  Serious: Yes (Other)
  Sender: FDA-Public Use
  Company Number: US-AMGEN-USASP2014056943

PATIENT
  Age: 85 Year
  Sex: Female

DRUGS (4)
  1. CALCIUM                            /00060701/ [Concomitant]
     Active Substance: CALCIUM
  2. VITAMIN D                          /00107901/ [Concomitant]
     Active Substance: ERGOCALCIFEROL
  3. PROLIA [Suspect]
     Active Substance: DENOSUMAB
     Indication: OSTEOPOROSIS POSTMENOPAUSAL
     Route: 065
  4. PREDNISONE                         /00044702/ [Concomitant]
     Active Substance: PREDNISONE
     Indication: ARTHRITIS

REACTIONS (1)
  - Osteonecrosis of jaw [Unknown]
